FAERS Safety Report 26159118 (Version 1)
Quarter: 2025Q4

REPORT INFORMATION
  Report Type: Spontaneous
  Country: JP (occurrence: JP)
  Receive Date: 20251216
  Receipt Date: 20251216
  Transmission Date: 20260118
  Serious: Yes (Other)
  Sender: BAXTER
  Company Number: JP-MLMSERVICE-20251128-PI730671-00165-1

PATIENT
  Age: 67 Year
  Sex: Female

DRUGS (14)
  1. DOXORUBICIN [Suspect]
     Active Substance: DOXORUBICIN
     Indication: Diffuse large B-cell lymphoma stage IV
     Dosage: 6 CYCLES OF POLA-R-CHP THERAPY FROM 1-4 MONTHS
     Route: 065
  2. POLATUZUMAB VEDOTIN [Suspect]
     Active Substance: POLATUZUMAB VEDOTIN
     Indication: Diffuse large B-cell lymphoma stage IV
     Dosage: 6 CYCLES OF POLA-R-CHP THERAPY FROM 1-4 MONTHS
     Route: 065
  3. CYCLOPHOSPHAMIDE [Suspect]
     Active Substance: CYCLOPHOSPHAMIDE
     Indication: Diffuse large B-cell lymphoma stage IV
     Dosage: 6 CYCLES OF POLA-R-CHP THERAPY FROM 1-4 MONTHS
     Route: 065
  4. CYCLOPHOSPHAMIDE [Suspect]
     Active Substance: CYCLOPHOSPHAMIDE
     Indication: Lymphodepletion
     Dosage: 500 MG/M2, AS STANDARD LYMPHODEPLETION REGIMEN
     Route: 065
  5. PREDNISONE [Suspect]
     Active Substance: PREDNISONE
     Indication: Diffuse large B-cell lymphoma stage IV
     Dosage: 6 CYCLES OF POLA-R-CHP THERAPY FROM 1-4 MONTHS
     Route: 065
  6. RITUXIMAB [Suspect]
     Active Substance: RITUXIMAB
     Indication: Diffuse large B-cell lymphoma stage IV
     Dosage: 375 MG/M2, POLA-R-CHP THERAPY FROM 1-4 MONTHS
     Route: 065
  7. RITUXIMAB [Suspect]
     Active Substance: RITUXIMAB
     Dosage: BETWEEN 15 AND 16 MONTHS, SHE RECEIVED 2 CYCLES OF R-GDP THERAPY
     Route: 065
  8. GEMCITABINE [Suspect]
     Active Substance: GEMCITABINE
     Indication: Diffuse large B-cell lymphoma stage IV
     Dosage: BETWEEN 15 AND 16 MONTHS, SHE RECEIVED 2 CYCLES OF R-GDP THERAPY
     Route: 065
  9. DEXAMETHASONE [Suspect]
     Active Substance: DEXAMETHASONE
     Indication: Diffuse large B-cell lymphoma stage IV
     Dosage: BETWEEN 15 AND 16 MONTHS, SHE RECEIVED 2 CYCLES OF R-GDP THERAPY
     Route: 065
  10. DEXAMETHASONE [Suspect]
     Active Substance: DEXAMETHASONE
     Indication: Cytokine release syndrome
     Dosage: 20 MG DAILY FOR 3 DAYS, AS TREATMENT OF CYTOKINE RELEASE SYNDROME
     Route: 065
  11. DEXAMETHASONE [Suspect]
     Active Substance: DEXAMETHASONE
     Dosage: 10 MG DAILY FOR 2 DAYS, AS TREATMENT OF CYTOKINE RELEASE SYNDROME
     Route: 065
  12. CISPLATIN [Suspect]
     Active Substance: CISPLATIN
     Indication: Diffuse large B-cell lymphoma stage IV
     Dosage: BETWEEN 15 AND 16 MONTHS, SHE RECEIVED 2 CYCLES OF R-GDP THERAPY
     Route: 065
  13. FLUDARABINE [Suspect]
     Active Substance: FLUDARABINE PHOSPHATE
     Indication: Lymphodepletion
     Dosage: 25 MG/M2 (STANDARD LYMPHODEPLETION REGIMEN)
     Route: 065
  14. TOCILIZUMAB [Concomitant]
     Active Substance: TOCILIZUMAB
     Indication: Cytokine release syndrome
     Dosage: 8 MG/KG IN 2 DOSES
     Route: 065

REACTIONS (9)
  - Diffuse large B-cell lymphoma stage IV [Unknown]
  - Disease progression [Unknown]
  - Polyomavirus-associated nephropathy [Not Recovered/Not Resolved]
  - End stage renal disease [Not Recovered/Not Resolved]
  - Blood creatinine increased [Not Recovered/Not Resolved]
  - Polyomavirus viraemia [Not Recovered/Not Resolved]
  - Tubulointerstitial nephritis [Not Recovered/Not Resolved]
  - Kidney fibrosis [Not Recovered/Not Resolved]
  - Toxicity to various agents [Unknown]
